FAERS Safety Report 11529991 (Version 2)
Quarter: 2015Q4

REPORT INFORMATION
  Report Type: Spontaneous
  Country: US (occurrence: US)
  Receive Date: 20150921
  Receipt Date: 20151009
  Transmission Date: 20160304
  Serious: No
  Sender: FDA-Public Use
  Company Number: US-BAYER-2015-421908

PATIENT
  Age: 83 Year
  Sex: Male
  Weight: 79.37 kg

DRUGS (17)
  1. FUROSEMIDE. [Concomitant]
     Active Substance: FUROSEMIDE
     Dosage: 1 DF, QD
     Route: 048
  2. COLACE [Concomitant]
     Active Substance: DOCUSATE SODIUM
     Dosage: 1 DF, QD
     Route: 048
  3. SPIRONOLACTONE. [Concomitant]
     Active Substance: SPIRONOLACTONE
     Dosage: 1 DF, QD
     Route: 048
  4. POTASSIUM CHLORIDE. [Concomitant]
     Active Substance: POTASSIUM CHLORIDE
     Dosage: 1 DF, QD
     Route: 048
  5. LOMOTIL [DIPHENOXYLATE HYDROCHLORIDE] [Concomitant]
     Dosage: 1 DF, QD
     Route: 048
  6. DIPHENOXYLATE/ATROPINE [DIPHENOXYLATE HYDROCHLORIDE] [Concomitant]
     Dosage: 1 DF, EVERY 6 HOURS
     Route: 048
  7. TRAMADOL. [Concomitant]
     Active Substance: TRAMADOL
     Dosage: 1 DF, EVERY 4 HOURS
     Route: 048
  8. HYDROCODONE W/ACETAMINOPHEN [Concomitant]
     Active Substance: ACETAMINOPHEN\HYDROCODONE BITARTRATE
     Dosage: 1 DF, Q8HR
     Route: 048
  9. CRESTOR [Concomitant]
     Active Substance: ROSUVASTATIN CALCIUM
     Dosage: 1 DF, QD
     Route: 048
  10. LORAZEPAM. [Concomitant]
     Active Substance: LORAZEPAM
     Dosage: 1 DF, QD
     Route: 048
  11. MELATONIN [Concomitant]
     Active Substance: MELATONIN
     Dosage: 1 DF, QD
     Route: 048
  12. LISINOPRIL. [Concomitant]
     Active Substance: LISINOPRIL
     Dosage: 1 DF, QD
     Route: 048
  13. MIRALAX [Suspect]
     Active Substance: POLYETHYLENE GLYCOL 3350
     Indication: CONSTIPATION
  14. WARFARIN [Concomitant]
     Active Substance: WARFARIN
     Dosage: 1 DF, QD
     Route: 048
  15. TYLENOL [Concomitant]
     Active Substance: ACETAMINOPHEN
     Dosage: 2 DF, PRN
     Route: 048
  16. MIRALAX [Suspect]
     Active Substance: POLYETHYLENE GLYCOL 3350
     Indication: CONSTIPATION
     Dosage: UNK
     Route: 048
  17. CLOPIDOGREL [Concomitant]
     Active Substance: CLOPIDOGREL BISULFATE
     Dosage: 1 DF, QD
     Route: 048

REACTIONS (3)
  - Flatulence [Not Recovered/Not Resolved]
  - Drug ineffective [Unknown]
  - Gastrointestinal motility disorder [None]

NARRATIVE: CASE EVENT DATE: 20150907
